FAERS Safety Report 20966449 (Version 1)
Quarter: 2022Q2

REPORT INFORMATION
  Report Type: Spontaneous
  Country: US (occurrence: None)
  Receive Date: 20220615
  Receipt Date: 20220615
  Transmission Date: 20220721
  Serious: Yes (Hospitalization, Disabling, Other)
  Sender: FDA-Public Use
  Company Number: None

PATIENT
  Age: 86 Year
  Sex: Female
  Weight: 33.75 kg

DRUGS (6)
  1. CEFEPIME [Suspect]
     Active Substance: CEFEPIME HYDROCHLORIDE
     Indication: Kidney infection
     Dosage: OTHER STRENGTH : DON^T KNOW;?FREQUENCY : TWICE A DAY;?
     Route: 042
     Dates: start: 20220407, end: 20220413
  2. ATENOLOL [Concomitant]
  3. LEVOTHYROXINE [Concomitant]
     Active Substance: LEVOTHYROXINE
  4. REQUIP [Concomitant]
     Active Substance: ROPINIROLE HYDROCHLORIDE
  5. PESARRY DEVICE [Concomitant]
  6. VITAMIN B12 [Concomitant]
     Active Substance: CYANOCOBALAMIN

REACTIONS (14)
  - Paraesthesia oral [None]
  - Paraesthesia oral [None]
  - Confusional state [None]
  - Infusion related reaction [None]
  - Aggression [None]
  - Hallucination [None]
  - Therapy cessation [None]
  - Asthenia [None]
  - Fall [None]
  - Hip fracture [None]
  - Aphasia [None]
  - Dementia [None]
  - Fine motor skill dysfunction [None]
  - Hyporesponsive to stimuli [None]

NARRATIVE: CASE EVENT DATE: 20220408
